FAERS Safety Report 9217512 (Version 4)
Quarter: 2013Q2

REPORT INFORMATION
  Report Type: Spontaneous
  Country: US (occurrence: None)
  Receive Date: 20130404
  Receipt Date: 20130515
  Transmission Date: 20140414
  Serious: Yes (Hospitalization)
  Sender: FDA-Public Use
  Company Number: JPI-P-030764

PATIENT
  Age: 60 Year
  Sex: Male

DRUGS (1)
  1. XYREM [Suspect]
     Indication: CATAPLEXY
     Dosage: (2.25 MG,2 IN 1 D)
     Route: 048
     Dates: start: 20130304, end: 20130310

REACTIONS (4)
  - Abdominal pain [None]
  - Therapy cessation [None]
  - Sleep disorder [None]
  - Colitis ischaemic [None]
